FAERS Safety Report 4586470-7 (Version None)
Quarter: 2005Q1

REPORT INFORMATION
  Report Type: 
  Country: None (occurrence: None)
  Receive Date: 20050214
  Receipt Date: 20050203
  Transmission Date: 20050727
  Serious: Yes (Hospitalization)
  Sender: FDA-Public Use
  Company Number: S05-USA-00561-01

PATIENT
  Age: 81 Year
  Sex: Male

DRUGS (1)
  1. NAMENDA [Suspect]
     Dosage: 10 MG BID PO
     Route: 048

REACTIONS (1)
  - RENAL FAILURE ACUTE [None]
